FAERS Safety Report 15461753 (Version 1)
Quarter: 2018Q4

REPORT INFORMATION
  Report Type: Spontaneous
  Country: US (occurrence: US)
  Receive Date: 20181003
  Receipt Date: 20181003
  Transmission Date: 20190204
  Serious: No
  Sender: FDA-Public Use
  Company Number: US-AMGEN-USASP2018108582

PATIENT
  Sex: Female

DRUGS (1)
  1. VECTIBIX [Suspect]
     Active Substance: PANITUMUMAB
     Indication: NEOPLASM MALIGNANT
     Dosage: UNK
     Route: 065
     Dates: start: 2018

REACTIONS (2)
  - Therapeutic response unexpected [Unknown]
  - Rash [Unknown]

NARRATIVE: CASE EVENT DATE: 2018
